FAERS Safety Report 8441049-1 (Version None)
Quarter: 2012Q2

REPORT INFORMATION
  Report Type: 
  Country: None (occurrence: None)
  Receive Date: 20120615
  Receipt Date: 20110524
  Transmission Date: 20120825
  Serious: No
  Sender: FDA-Public Use
  Company Number: US-NOVEN-11US002505

PATIENT

DRUGS (5)
  1. UNSPECIFIED EYE GTTS [Concomitant]
     Indication: GUN SHOT WOUND
     Route: 047
  2. DAYTRANA [Suspect]
     Indication: ATTENTION DEFICIT/HYPERACTIVITY DISORDER
     Dosage: 30 MG
     Route: 062
     Dates: start: 20110101
  3. MIRTAZAPINE [Concomitant]
     Indication: PRODUCT USED FOR UNKNOWN INDICATION
     Dosage: 7.5 MG, UNKNOWN
     Route: 048
  4. TOPIRAMATE [Concomitant]
     Indication: PRODUCT USED FOR UNKNOWN INDICATION
     Dosage: 100 MG, BEDTIME
     Route: 048
  5. MELATONIN [Concomitant]
     Indication: INSOMNIA
     Dosage: 3 MG, BEDTIME

REACTIONS (5)
  - APPLICATION SITE RASH [None]
  - PRODUCT QUALITY ISSUE [None]
  - APPLICATION SITE ERYTHEMA [None]
  - ACCIDENTAL EXPOSURE [None]
  - APPLICATION SITE EROSION [None]
